FAERS Safety Report 4844490-9 (Version None)
Quarter: 2005Q4

REPORT INFORMATION
  Report Type: 
  Country: None (occurrence: None)
  Receive Date: 20051203
  Receipt Date: 20050803
  Transmission Date: 20060501
  Serious: Yes (Disabling, Other)
  Sender: FDA-Public Use
  Company Number: PHNR2005AU01202

PATIENT
  Age: 65 Year
  Sex: Female

DRUGS (7)
  1. ZOMETA [Suspect]
     Indication: OSTEOPOROSIS
     Dosage: 4 MG, ONCE/SINGLE
     Dates: start: 20030501, end: 20030501
  2. ZOMETA [Suspect]
     Dosage: 4 MG, ONCE/SINGLE
     Dates: start: 20040301, end: 20040301
  3. ZOMETA [Suspect]
     Dosage: 4 MG, ONCE/SINGLE
     Dates: start: 20050301, end: 20050301
  4. PREDNISOLONE [Suspect]
     Indication: BRONCHIECTASIS
     Dates: start: 19510101
  5. PREDNISOLONE [Suspect]
     Dosage: DAILY
     Dates: start: 19950101
  6. CHOLESTEROL- AND TRIGLYCERIDE REDUCERS [Suspect]
  7. GLUCOCORTICOIDS [Suspect]

REACTIONS (22)
  - ALOPECIA [None]
  - ARTHRALGIA [None]
  - BONE PAIN [None]
  - CEREBROVASCULAR ACCIDENT [None]
  - DIFFICULTY IN WALKING [None]
  - FALL [None]
  - FLUID RETENTION [None]
  - HYPOAESTHESIA ORAL [None]
  - HYPOTRICHOSIS [None]
  - INFLUENZA LIKE ILLNESS [None]
  - JOINT SWELLING [None]
  - LOSS OF CONTROL OF LEGS [None]
  - MYALGIA [None]
  - MYOPATHY [None]
  - MYOSITIS [None]
  - OEDEMA PERIPHERAL [None]
  - PAIN [None]
  - PAIN IN EXTREMITY [None]
  - PHOTOPHOBIA [None]
  - SPEECH DISORDER [None]
  - TOOTH LOSS [None]
  - VISION BLURRED [None]
